FAERS Safety Report 19497418 (Version 3)
Quarter: 2023Q2

REPORT INFORMATION
  Report Type: Report from Study
  Country: US (occurrence: US)
  Receive Date: 20210706
  Receipt Date: 20230428
  Transmission Date: 20230722
  Serious: Yes (Other)
  Sender: FDA-Public Use
  Company Number: US-TAKEDA-US201717644

PATIENT
  Sex: Female

DRUGS (1)
  1. HUMAN IMMUNOGLOBULIN G [Suspect]
     Active Substance: HUMAN IMMUNOGLOBULIN G
     Indication: Primary immunodeficiency syndrome
     Dosage: 10 GRAM, 1/WEEK
     Route: 058

REACTIONS (8)
  - Haemorrhage [Unknown]
  - Crohn^s disease [Unknown]
  - Insurance issue [Unknown]
  - Colonoscopy abnormal [Unknown]
  - Dysplasia [Unknown]
  - Haemoglobin abnormal [Unknown]
  - Polyp [Unknown]
  - Inappropriate schedule of product administration [Unknown]
